FAERS Safety Report 10994888 (Version 2)
Quarter: 2015Q2

REPORT INFORMATION
  Report Type: Report from Study
  Country: US (occurrence: US)
  Receive Date: 20150407
  Receipt Date: 20150410
  Transmission Date: 20150821
  Serious: Yes (Hospitalization, Other)
  Sender: FDA-Public Use
  Company Number: US-GILEAD-2015-0145357

PATIENT
  Age: 69 Year
  Sex: Female

DRUGS (5)
  1. REVATIO [Concomitant]
     Active Substance: SILDENAFIL CITRATE
  2. GLEEVEC [Concomitant]
     Active Substance: IMATINIB MESYLATE
  3. WARFARIN [Concomitant]
     Active Substance: WARFARIN
  4. VELETRI [Concomitant]
     Active Substance: EPOPROSTENOL
  5. AMBRISENTAN [Suspect]
     Active Substance: AMBRISENTAN
     Indication: PRODUCT USED FOR UNKNOWN INDICATION
     Dosage: 5 MG, QD
     Route: 065
     Dates: start: 20100505

REACTIONS (2)
  - Oedema [Unknown]
  - Cardiac failure congestive [Unknown]
